FAERS Safety Report 9233462 (Version 1)
Quarter: 2013Q2

REPORT INFORMATION
  Report Type: Spontaneous
  Country: US (occurrence: US)
  Receive Date: 20130416
  Receipt Date: 20130416
  Transmission Date: 20140414
  Serious: Yes (Death)
  Sender: FDA-Public Use
  Company Number: US-MYLANLABS-2012S1014103

PATIENT
  Age: 57 Year
  Sex: Male
  Weight: 85.73 kg

DRUGS (2)
  1. PAROXETINE TABLETS USP [Suspect]
     Indication: DEPRESSION
     Route: 048
     Dates: start: 20100710
  2. PAROXETINE TABLETS USP [Suspect]
     Indication: ANXIETY
     Route: 048
     Dates: start: 20100710

REACTIONS (7)
  - Completed suicide [Fatal]
  - Drug ineffective [Not Recovered/Not Resolved]
  - Depression [Not Recovered/Not Resolved]
  - Anxiety [Not Recovered/Not Resolved]
  - Thinking abnormal [Not Recovered/Not Resolved]
  - Akathisia [Not Recovered/Not Resolved]
  - Insomnia [Not Recovered/Not Resolved]
